FAERS Safety Report 10206282 (Version 1)
Quarter: 2014Q2

REPORT INFORMATION
  Report Type: Spontaneous
  Country: US (occurrence: US)
  Receive Date: 20140530
  Receipt Date: 20140530
  Transmission Date: 20141212
  Serious: Yes (Other)
  Sender: FDA-Public Use
  Company Number: US-JNJFOC-20140514573

PATIENT
  Sex: 0

DRUGS (1)
  1. INFLIXIMAB, RECOMBINANT [Suspect]
     Indication: INFLAMMATORY BOWEL DISEASE
     Route: 042

REACTIONS (7)
  - Pneumonia [Unknown]
  - Lupus-like syndrome [Unknown]
  - Psoriasis [Unknown]
  - Infusion related reaction [Unknown]
  - Inflammatory bowel disease [Unknown]
  - Infusion related reaction [Unknown]
  - Antibody test abnormal [Unknown]
